FAERS Safety Report 6709274-5 (Version None)
Quarter: 2010Q2

REPORT INFORMATION
  Report Type: 
  Country: None (occurrence: None)
  Receive Date: 20100504
  Receipt Date: 20100420
  Transmission Date: 20101027
  Serious: Yes (Hospitalization)
  Sender: FDA-Public Use
  Company Number: NL-MEDIMMUNE-MEDI-0011131

PATIENT
  Sex: Male
  Weight: 6.77 kg

DRUGS (2)
  1. SYNAGIS [Suspect]
     Route: 030
     Dates: start: 20091022, end: 20100319
  2. SYNAGIS [Suspect]
     Route: 030
     Dates: start: 20100416, end: 20100416

REACTIONS (8)
  - ALTERED STATE OF CONSCIOUSNESS [None]
  - COUGH [None]
  - DYSPNOEA [None]
  - FEBRILE CONVULSION [None]
  - NASAL CONGESTION [None]
  - NASOPHARYNGITIS [None]
  - PNEUMONIA [None]
  - RESPIRATORY TRACT INFECTION [None]
